FAERS Safety Report 10736917 (Version 1)
Quarter: 2015Q1

REPORT INFORMATION
  Report Type: Spontaneous
  Country: US (occurrence: None)
  Receive Date: 20150123
  Receipt Date: 20150123
  Transmission Date: 20150721
  Serious: Yes (Life-Threatening, Hospitalization)
  Sender: FDA-Public Use
  Company Number: None

PATIENT
  Age: 37 Year
  Sex: Male
  Weight: 69.4 kg

DRUGS (1)
  1. ONABOTULINUMTOXINA [Suspect]
     Active Substance: ONABOTULINUMTOXINA
     Indication: POST CONCUSSION SYNDROME
     Route: 030
     Dates: start: 20141211, end: 20141211

REACTIONS (2)
  - Dysphagia [None]
  - Aspiration [None]

NARRATIVE: CASE EVENT DATE: 20141211
